FAERS Safety Report 9046963 (Version 2)
Quarter: 2013Q1

REPORT INFORMATION
  Report Type: Spontaneous
  Country: DE (occurrence: DE)
  Receive Date: 20130204
  Receipt Date: 20130320
  Transmission Date: 20140127
  Serious: Yes (Life-Threatening, Other)
  Sender: FDA-Public Use
  Company Number: DE-ELI_LILLY_AND_COMPANY-DE201301009224

PATIENT
  Sex: Female

DRUGS (2)
  1. STRATTERA [Suspect]
     Indication: ATTENTION DEFICIT/HYPERACTIVITY DISORDER
     Dosage: 80 MG, QD
     Route: 048
     Dates: start: 201008
  2. STRATTERA [Suspect]
     Dosage: 40 MG, UNKNOWN
     Dates: start: 201207

REACTIONS (2)
  - Pancreatic carcinoma [Not Recovered/Not Resolved]
  - Off label use [Unknown]
